FAERS Safety Report 7423472-7 (Version None)
Quarter: 2011Q2

REPORT INFORMATION
  Report Type: 
  Country: None (occurrence: None)
  Receive Date: 20110419
  Receipt Date: 20110414
  Transmission Date: 20111010
  Serious: Yes (Other)
  Sender: FDA-Public Use
  Company Number: AU-ROCHE-771724

PATIENT
  Sex: Female

DRUGS (2)
  1. TACROLIMUS [Concomitant]
  2. CYMEVENE [Suspect]
     Route: 065

REACTIONS (5)
  - THROMBOTIC THROMBOCYTOPENIC PURPURA [None]
  - CONVULSION [None]
  - PSYCHOTIC DISORDER [None]
  - HALLUCINATION [None]
  - CONFUSIONAL STATE [None]
